FAERS Safety Report 6613471-7 (Version None)
Quarter: 2010Q1

REPORT INFORMATION
  Report Type: 
  Country: None (occurrence: None)
  Receive Date: 20100304
  Receipt Date: 20100218
  Transmission Date: 20100710
  Serious: No
  Sender: FDA-Public Use
  Company Number: US-JNJFOC-20100209474

PATIENT
  Sex: Female
  Weight: 65.77 kg

DRUGS (4)
  1. DURAGESIC-100 [Suspect]
     Indication: ABDOMINAL PAIN
     Dosage: 24 TO 48 HOURS AS NEEDED
     Route: 062
  2. LISINOPRIL [Concomitant]
     Indication: HYPERTENSION
     Route: 048
  3. METOPROLOL TARTRATE [Concomitant]
     Indication: HYPERTENSION
     Route: 048
  4. LEVOTHYROXINE [Concomitant]
     Indication: THYROID DISORDER
     Route: 048

REACTIONS (4)
  - DRUG PRESCRIBING ERROR [None]
  - MALAISE [None]
  - PRODUCT QUALITY ISSUE [None]
  - WITHDRAWAL SYNDROME [None]
